FAERS Safety Report 7913846-X (Version None)
Quarter: 2011Q4

REPORT INFORMATION
  Report Type: 
  Country: None (occurrence: None)
  Receive Date: 20111110
  Receipt Date: 20111101
  Transmission Date: 20120403
  Serious: Yes (Hospitalization, Other)
  Sender: FDA-Public Use
  Company Number: ADR-2011-11431

PATIENT
  Age: 8 Year
  Sex: Male

DRUGS (1)
  1. BACLOFEN [Suspect]
     Dosage: 350

REACTIONS (6)
  - MUSCLE SPASTICITY [None]
  - DRUG WITHDRAWAL SYNDROME [None]
  - DEVICE OCCLUSION [None]
  - DEVICE DISLOCATION [None]
  - HYPERHIDROSIS [None]
  - PRURITUS [None]
